FAERS Safety Report 4518366-0 (Version None)
Quarter: 2004Q4

REPORT INFORMATION
  Report Type: 
  Country: None (occurrence: None)
  Receive Date: 20041202
  Receipt Date: 20030909
  Transmission Date: 20050328
  Serious: Yes (Hospitalization)
  Sender: FDA-Public Use
  Company Number: 179120

PATIENT
  Age: 56 Year
  Sex: Male

DRUGS (1)
  1. AVONEX [Suspect]
     Indication: MULTIPLE SCLEROSIS
     Dosage: 30 UG; QW; IM
     Route: 030

REACTIONS (6)
  - CARDIAC OPERATION [None]
  - INFECTION [None]
  - PROSTATIC OPERATION [None]
  - PYREXIA [None]
  - SKIN GRAFT [None]
  - THERMAL BURN [None]
